FAERS Safety Report 17147428 (Version 2)
Quarter: 2020Q1

REPORT INFORMATION
  Report Type: Spontaneous
  Country: HN (occurrence: HN)
  Receive Date: 20191212
  Receipt Date: 20200120
  Transmission Date: 20200409
  Serious: Yes (Life-Threatening, Hospitalization, Other)
  Sender: FDA-Public Use
  Company Number: HN-BAYER-2019-220351

PATIENT
  Age: 26 Year
  Sex: Female

DRUGS (7)
  1. CYCLOPHOSPHAMIDE;DOXORUBICIN [Concomitant]
     Dosage: UNK
     Dates: start: 201611, end: 201703
  2. DOCETAXEL. [Concomitant]
     Active Substance: DOCETAXEL
     Dosage: UNK
     Dates: start: 201709, end: 201805
  3. LYRICA [Concomitant]
     Active Substance: PREGABALIN
     Dosage: 75 MG SH
  4. PARACETAMOL [Concomitant]
     Active Substance: ACETAMINOPHEN
     Dosage: 750 MG BID OR TID
  5. NEXAVAR [Suspect]
     Active Substance: SORAFENIB
     Indication: THYROID CANCER METASTATIC
     Dosage: 400 MG DAILY
     Route: 048
     Dates: start: 20191105, end: 20191129
  6. LEVOTHYROXINE. [Concomitant]
     Active Substance: LEVOTHYROXINE
     Dosage: 100 ?G DAILY
     Dates: start: 2004, end: 2019
  7. MORPHINE [Concomitant]
     Active Substance: MORPHINE
     Dosage: 169 MG DAILY
     Dates: start: 201903

REACTIONS (7)
  - Abnormal faeces [Recovered/Resolved]
  - Hypokalaemia [Not Recovered/Not Resolved]
  - Hypocalcaemia [Not Recovered/Not Resolved]
  - Hyponatraemia [Not Recovered/Not Resolved]
  - Hypomagnesaemia [Not Recovered/Not Resolved]
  - Diarrhoea [Recovered/Resolved]
  - Hypoglycaemia [Not Recovered/Not Resolved]

NARRATIVE: CASE EVENT DATE: 20191106
